FAERS Safety Report 8833186 (Version 2)
Quarter: 2012Q4

REPORT INFORMATION
  Report Type: Report from Study
  Country: JP (occurrence: JP)
  Receive Date: 20121010
  Receipt Date: 20121212
  Transmission Date: 20130627
  Serious: Yes (Other)
  Sender: FDA-Public Use
  Company Number: JP-JNJFOC-20121004278

PATIENT
  Age: 54 Year
  Sex: Female
  Weight: 73 kg

DRUGS (9)
  1. STELARA [Suspect]
     Indication: PSORIASIS
     Route: 058
     Dates: start: 20120308
  2. STELARA [Suspect]
     Indication: PSORIASIS
     Route: 058
     Dates: start: 20120405
  3. STELARA [Suspect]
     Indication: PSORIASIS
     Route: 058
     Dates: start: 20120628
  4. ALLELOCK [Suspect]
     Indication: PSORIASIS
     Route: 048
  5. ALESION [Concomitant]
     Indication: PSORIASIS
     Route: 048
  6. OXAROL [Concomitant]
     Indication: PSORIASIS
     Route: 061
  7. ANTEBATE [Concomitant]
     Indication: PSORIASIS
     Route: 061
  8. WHITE PETROLATUM [Concomitant]
     Indication: PSORIASIS
     Route: 061
  9. ALLEGRA [Concomitant]
     Indication: PSORIASIS
     Route: 048

REACTIONS (1)
  - Peripheral nerve operation [Recovered/Resolved]
